FAERS Safety Report 10554708 (Version 2)
Quarter: 2014Q4

REPORT INFORMATION
  Report Type: Report from Study
  Country: US (occurrence: US)
  Receive Date: 20141030
  Receipt Date: 20141120
  Transmission Date: 20150529
  Serious: Yes (Hospitalization, Other)
  Sender: FDA-Public Use
  Company Number: US-BAXTER-2014BAX063958

PATIENT
  Sex: Female

DRUGS (8)
  1. GAMUNEX [Suspect]
     Active Substance: HUMAN IMMUNOGLOBULIN G
     Indication: PRODUCT USED FOR UNKNOWN INDICATION
     Route: 042
     Dates: start: 2007, end: 2008
  2. GAMUNEX [Suspect]
     Active Substance: HUMAN IMMUNOGLOBULIN G
     Route: 042
  3. GAMMAGARD LIQUID [Suspect]
     Active Substance: HUMAN IMMUNOGLOBULIN G
     Indication: IMMUNODEFICIENCY COMMON VARIABLE
     Route: 042
     Dates: start: 2008, end: 2008
  4. GAMMAGARD LIQUID [Suspect]
     Active Substance: HUMAN IMMUNOGLOBULIN G
     Dosage: 10 GM EVERY OTHER WEEK AND ALTERNATING WITH 15 GM
     Route: 042
     Dates: start: 2008, end: 2009
  5. SALINE [Concomitant]
     Active Substance: SODIUM CHLORIDE
     Indication: PREMEDICATION
     Route: 042
     Dates: start: 2008, end: 2009
  6. VIVAGLOBIN [Suspect]
     Active Substance: HUMAN IMMUNOGLOBULIN G
     Indication: IMMUNODEFICIENCY COMMON VARIABLE
     Route: 065
     Dates: start: 2010, end: 2011
  7. GAMMAGARD LIQUID [Suspect]
     Active Substance: HUMAN IMMUNOGLOBULIN G
     Dosage: 10 GM EVERY OTHER WEEK AND ALTERNATING WITH 15 GM
     Route: 042
     Dates: start: 2011, end: 201202
  8. BENADRYL [Concomitant]
     Active Substance: DIPHENHYDRAMINE HYDROCHLORIDE
     Indication: PREMEDICATION
     Dosage: 50 MG PREMEDICATION, 25 MG FOR 2 DOSES EVERY 4 HOURS AFTER INFUSION
     Route: 042
     Dates: start: 2008, end: 2009

REACTIONS (11)
  - Dyspnoea [Recovered/Resolved]
  - Drug ineffective [Recovered/Resolved]
  - Respiratory tract infection [Unknown]
  - Malaise [Recovered/Resolved]
  - Disease complication [Recovered/Resolved]
  - Ear pain [Unknown]
  - Migraine [Recovering/Resolving]
  - Meningitis [Recovered/Resolved]
  - Asthma [Not Recovered/Not Resolved]
  - Allergy to immunoglobulin therapy [Recovered/Resolved]
  - Chills [Recovered/Resolved]

NARRATIVE: CASE EVENT DATE: 2008
